FAERS Safety Report 13143813 (Version 2)
Quarter: 2017Q1

REPORT INFORMATION
  Report Type: Spontaneous
  Country: FR (occurrence: FR)
  Receive Date: 20170124
  Receipt Date: 20170316
  Transmission Date: 20170428
  Serious: Yes (Hospitalization)
  Sender: FDA-Public Use
  Company Number: FR-JNJFOC-20170118319

PATIENT
  Age: 43 Year
  Sex: Male

DRUGS (11)
  1. DOLIPRANE [Concomitant]
     Active Substance: ACETAMINOPHEN
     Route: 065
  2. REMICADE [Suspect]
     Active Substance: INFLIXIMAB
     Indication: HIDRADENITIS
     Route: 042
  3. REMICADE [Suspect]
     Active Substance: INFLIXIMAB
     Indication: HIDRADENITIS
     Route: 042
     Dates: start: 201604
  4. DISULONE [Suspect]
     Active Substance: DAPSONE\FERROUS OXALATE
     Indication: HIDRADENITIS
     Route: 065
     Dates: start: 201603, end: 20161222
  5. REMICADE [Suspect]
     Active Substance: INFLIXIMAB
     Indication: HIDRADENITIS
     Route: 042
     Dates: start: 201603
  6. CORTANCYL [Concomitant]
     Active Substance: PREDNISONE
     Route: 065
  7. DISULONE [Suspect]
     Active Substance: DAPSONE\FERROUS OXALATE
     Indication: HIDRADENITIS
     Route: 065
     Dates: start: 20160422
  8. METHOTREXATE. [Concomitant]
     Active Substance: METHOTREXATE
     Route: 065
     Dates: start: 201603
  9. BETESIL [Concomitant]
     Route: 065
  10. REMICADE [Suspect]
     Active Substance: INFLIXIMAB
     Indication: HIDRADENITIS
     Route: 042
  11. CACIT VITAMINE D3 [Concomitant]
     Active Substance: CALCIUM CARBONATE\CHOLECALCIFEROL
     Route: 065

REACTIONS (7)
  - Depression [Recovered/Resolved]
  - Hypersomnia [Unknown]
  - Off label use [Unknown]
  - Product use issue [Unknown]
  - Irritability [Unknown]
  - Weight decreased [Unknown]
  - Merycism [Unknown]

NARRATIVE: CASE EVENT DATE: 201603
